FAERS Safety Report 9442472 (Version 2)
Quarter: 2013Q3

REPORT INFORMATION
  Report Type: Spontaneous
  Country: AU (occurrence: AU)
  Receive Date: 20130806
  Receipt Date: 20130813
  Transmission Date: 20140515
  Serious: Yes (Disabling)
  Sender: FDA-Public Use
  Company Number: AU-PFIZER INC-2013227970

PATIENT
  Age: 22 Year
  Sex: Female
  Weight: 57 kg

DRUGS (1)
  1. PRISTIQ [Suspect]
     Indication: DEPRESSION
     Dosage: 50 MG, DAILY
     Route: 048

REACTIONS (10)
  - Haemorrhage [Unknown]
  - Confusional state [Unknown]
  - Contusion [Unknown]
  - Mobility decreased [Unknown]
  - Chills [Unknown]
  - Dizziness [Unknown]
  - Nightmare [Unknown]
  - Vomiting [Unknown]
  - Withdrawal syndrome [Unknown]
  - Pain [Unknown]
